FAERS Safety Report 10234069 (Version 1)
Quarter: 2014Q2

REPORT INFORMATION
  Report Type: Spontaneous
  Country: CA (occurrence: CA)
  Receive Date: 20140612
  Receipt Date: 20140612
  Transmission Date: 20141212
  Serious: Yes (Other)
  Sender: FDA-Public Use
  Company Number: PHHY2014CA072788

PATIENT
  Age: 66 Year
  Sex: Female
  Weight: 92.25 kg

DRUGS (6)
  1. ACLASTA [Suspect]
     Dosage: UNK UKN, UNK
  2. ACETAMINOPHEN [Concomitant]
     Dosage: UNK UKN, UNK
  3. ATIVAN [Concomitant]
     Dosage: UNK UKN, UNK
  4. ESOMEPRAZOLE [Concomitant]
     Dosage: UNK UKN, UNK
  5. PREDNISONE [Concomitant]
     Dosage: UNK UKN, UNK
  6. TRAZODONE [Concomitant]
     Dosage: UNK UKN, UNK

REACTIONS (4)
  - Influenza [Unknown]
  - Body temperature increased [Unknown]
  - Pain [Unknown]
  - Tremor [Unknown]
